FAERS Safety Report 20920998 (Version 1)
Quarter: 2022Q2

REPORT INFORMATION
  Report Type: Spontaneous
  Country: US (occurrence: None)
  Receive Date: 20220606
  Receipt Date: 20220606
  Transmission Date: 20220721
  Serious: Yes (Life-Threatening)
  Sender: FDA-Public Use
  Company Number: None

PATIENT
  Sex: Male

DRUGS (8)
  1. SUTENT [Suspect]
     Active Substance: SUNITINIB MALATE
     Indication: Product used for unknown indication
     Dosage: OTHER FREQUENCY : Q 42 DAYS;?
     Route: 048
     Dates: start: 20201222, end: 20220606
  2. GABAPENTIN [Concomitant]
     Active Substance: GABAPENTIN
  3. LASIX [Concomitant]
     Active Substance: FUROSEMIDE
  4. TRAMADOL [Concomitant]
     Active Substance: TRAMADOL
  5. LOSARTAN [Concomitant]
     Active Substance: LOSARTAN
  6. ATENOLOL [Concomitant]
     Active Substance: ATENOLOL
  7. centrum multivitamin [Concomitant]
  8. SANDOSTATIN [Concomitant]
     Active Substance: OCTREOTIDE ACETATE

REACTIONS (2)
  - Therapy interrupted [None]
  - Full blood count decreased [None]
